FAERS Safety Report 7236748-3 (Version None)
Quarter: 2011Q1

REPORT INFORMATION
  Report Type: 
  Country: None (occurrence: None)
  Receive Date: 20110120
  Receipt Date: 20110106
  Transmission Date: 20110831
  Serious: Yes (Other)
  Sender: FDA-Public Use
  Company Number: US-CELGENEUS-163-21880-11011028

PATIENT
  Sex: Male

DRUGS (11)
  1. ACYCLOVIR [Concomitant]
     Route: 065
  2. OPIUM TIN [Concomitant]
     Route: 065
  3. KLOR-CON [Concomitant]
     Route: 065
  4. CULTURELLE [Concomitant]
     Route: 065
  5. VICODIN [Concomitant]
     Route: 065
  6. REVLIMID [Suspect]
     Indication: MULTIPLE MYELOMA
     Route: 048
     Dates: start: 20070401
  7. CITALOPRAM HYDROBROMIDE [Concomitant]
     Route: 065
  8. IMODIUM [Concomitant]
     Route: 065
  9. LYRICA [Concomitant]
     Route: 065
  10. FENTANYL [Concomitant]
     Route: 065
  11. LASIX [Concomitant]
     Route: 065

REACTIONS (2)
  - HAEMORRHAGE [None]
  - DIARRHOEA [None]
